FAERS Safety Report 10032544 (Version 2)
Quarter: 2014Q2

REPORT INFORMATION
  Report Type: Spontaneous
  Country: US (occurrence: US)
  Receive Date: 20140324
  Receipt Date: 20140508
  Transmission Date: 20141212
  Serious: No
  Sender: FDA-Public Use
  Company Number: US-B.I. PHARMACEUTICALS,INC./RIDGEFIELD-2014-BI-11749BP

PATIENT
  Age: 64 Year
  Sex: Female

DRUGS (2)
  1. COMBIVENT [Suspect]
     Indication: CHRONIC OBSTRUCTIVE PULMONARY DISEASE
     Dosage: STRENGTH: 20 MCG / 100MCG DAILY DOSE: 80MCG/400MCG
     Route: 042
     Dates: start: 201303
  2. COMBIVENT [Suspect]
     Indication: PNEUMONIA
     Dosage: STRENGTH: 20 MCG / 100 MCG; DAILY DOSE: 160 MCG / 800 MCG
     Route: 055
     Dates: start: 201301, end: 201312

REACTIONS (2)
  - Drug prescribing error [Recovered/Resolved]
  - Off label use [Unknown]
